FAERS Safety Report 10515607 (Version 1)
Quarter: 2014Q4

REPORT INFORMATION
  Report Type: Spontaneous
  Country: US (occurrence: None)
  Receive Date: 20141009
  Receipt Date: 20141009
  Transmission Date: 20150528
  Serious: Yes (Hospitalization, Disabling)
  Sender: FDA-Public Use
  Company Number: 201409204

PATIENT
  Sex: Male

DRUGS (2)
  1. TESTIM [Suspect]
     Active Substance: TESTOSTERONE
     Indication: BLOOD TESTOSTERONE DECREASED
     Dosage: TRANSDERMAL
     Route: 062
  2. ANDROGEL [Suspect]
     Active Substance: TESTOSTERONE
     Indication: BLOOD TESTOSTERONE DECREASED
     Route: 061

REACTIONS (8)
  - Anxiety [None]
  - Asthenia [None]
  - Myocardial infarction [None]
  - Memory impairment [None]
  - Cerebrovascular accident [None]
  - Impaired work ability [None]
  - Depression [None]
  - Emotional disorder [None]

NARRATIVE: CASE EVENT DATE: 20090813
